FAERS Safety Report 10292614 (Version 1)
Quarter: 2014Q3

REPORT INFORMATION
  Report Type: Spontaneous
  Country: CN (occurrence: CN)
  Receive Date: 20140710
  Receipt Date: 20140710
  Transmission Date: 20150326
  Serious: Yes (Other)
  Sender: FDA-Public Use
  Company Number: CN-GILEAD-2014-0107765

PATIENT
  Age: 55 Year
  Sex: Male

DRUGS (6)
  1. LAMIVUDINE. [Concomitant]
     Active Substance: LAMIVUDINE
     Dosage: 100 MG, QD
     Route: 048
  2. ENTECAVIR [Concomitant]
     Active Substance: ENTECAVIR
     Dosage: 1 MG, QD
  3. ADEFOVIR DIPIVOXIL. [Suspect]
     Active Substance: ADEFOVIR DIPIVOXIL
     Dosage: 10 UNK, UNK
     Route: 065
     Dates: start: 200501
  4. LAMIVUDINE. [Concomitant]
     Active Substance: LAMIVUDINE
     Dosage: UNK
  5. ADEFOVIR DIPIVOXIL. [Suspect]
     Active Substance: ADEFOVIR DIPIVOXIL
     Indication: HEPATITIS B
     Dosage: 10 MG, QD
     Route: 065
  6. HBIG [Concomitant]

REACTIONS (4)
  - Drug ineffective [Recovered/Resolved]
  - Hepatic function abnormal [Unknown]
  - Hepatic enzyme increased [Unknown]
  - Viral mutation identified [Unknown]
